FAERS Safety Report 4955526-9 (Version None)
Quarter: 2006Q1

REPORT INFORMATION
  Report Type: 
  Country: None (occurrence: None)
  Receive Date: 20060328
  Receipt Date: 20040901
  Transmission Date: 20060701
  Serious: Yes (Hospitalization, Other)
  Sender: FDA-Public Use
  Company Number: DE-BRISTOL-MYERS SQUIBB COMPANY-13309745

PATIENT
  Age: 38 Year
  Sex: Female
  Weight: 56 kg

DRUGS (12)
  1. SUSTIVA [Suspect]
     Indication: HIV INFECTION
     Dates: start: 19990101, end: 20011001
  2. VIDEX [Suspect]
     Indication: HIV INFECTION
     Dates: start: 19940101, end: 19990101
  3. ZERIT [Suspect]
     Indication: HIV INFECTION
     Dates: start: 19970101, end: 19990101
  4. ZIDOVUDINE [Concomitant]
     Indication: HIV INFECTION
     Dosage: STARTED 1991-1992, 1996-1997, 1999-OCT-2001, OCT-2001-JUN-2002.
     Dates: start: 19910101
  5. ZALCITABINE [Concomitant]
     Indication: HIV INFECTION
     Dates: start: 19930101
  6. LAMIVUDINE [Concomitant]
     Indication: HIV INFECTION
     Dosage: STARTED 1996-1997, 1999-OCT-2001, OCT-2001-JUN-2002, AUG-2002
  7. SAQUINAVIR MESYLATE [Concomitant]
     Indication: HIV INFECTION
     Dates: start: 19960101, end: 19970101
  8. NEVIRAPINE [Concomitant]
     Indication: HIV INFECTION
     Dates: start: 20011001, end: 20020601
  9. AMPRENAVIR [Concomitant]
     Indication: HIV INFECTION
     Dates: start: 20020601
  10. LOPINAVIR [Concomitant]
     Indication: HIV INFECTION
     Dates: start: 20020601
  11. RITONAVIR [Concomitant]
     Indication: HIV INFECTION
     Dates: start: 20020601, end: 20020701
  12. ACTRAPHANE [Concomitant]
     Indication: DIABETES MELLITUS
     Dosage: DOSAGE: 30/70 (HUMAN INSULIN) 14-0-12 U/DAY.

REACTIONS (16)
  - ABDOMINAL PAIN UPPER [None]
  - ASTHENIA [None]
  - DIABETES MELLITUS [None]
  - DIARRHOEA [None]
  - DRUG INEFFECTIVE [None]
  - EXTRASYSTOLES [None]
  - FLATULENCE [None]
  - HERPES ZOSTER [None]
  - LIPODYSTROPHY ACQUIRED [None]
  - MYALGIA [None]
  - OEDEMA PERIPHERAL [None]
  - PANCREATITIS ACUTE [None]
  - PNEUMOCYSTIS JIROVECI PNEUMONIA [None]
  - PREGNANCY [None]
  - PRURITUS [None]
  - URTICARIA PAPULAR [None]
